FAERS Safety Report 12609562 (Version 1)
Quarter: 2016Q3

REPORT INFORMATION
  Report Type: Spontaneous
  Country: US (occurrence: US)
  Receive Date: 20160801
  Receipt Date: 20160801
  Transmission Date: 20161109
  Serious: No
  Sender: FDA-Public Use
  Company Number: US-TEVA-632784USA

PATIENT
  Sex: Female
  Weight: 68.1 kg

DRUGS (1)
  1. BACLOFEN. [Suspect]
     Active Substance: BACLOFEN
     Dosage: 30 MILLIGRAM DAILY;

REACTIONS (3)
  - Fatigue [Unknown]
  - Inappropriate schedule of drug administration [Unknown]
  - Muscle spasticity [Unknown]
